FAERS Safety Report 8509697-8 (Version None)
Quarter: 2012Q2

REPORT INFORMATION
  Report Type: 
  Country: None (occurrence: None)
  Receive Date: 20120405
  Receipt Date: 20090505
  Transmission Date: 20120825
  Serious: Yes (Hospitalization, Other)
  Sender: FDA-Public Use
  Company Number: PHEH2009US04459

PATIENT
  Sex: Female

DRUGS (2)
  1. REMICADE [Suspect]
     Dates: start: 20080317
  2. RECLAST [Suspect]
     Dates: start: 20080317

REACTIONS (1)
  - DYSPNOEA [None]
